FAERS Safety Report 4924419-5 (Version None)
Quarter: 2006Q1

REPORT INFORMATION
  Report Type: 
  Country: None (occurrence: None)
  Receive Date: 20060227
  Receipt Date: 20060215
  Transmission Date: 20060701
  Serious: Yes (Other)
  Sender: FDA-Public Use
  Company Number: BR-ROCHE-437051

PATIENT
  Age: 23 Year
  Sex: Female
  Weight: 54 kg

DRUGS (2)
  1. ROACUTAN [Suspect]
     Indication: ACNE
     Route: 048
     Dates: start: 20051015, end: 20060208
  2. UNSPECIFIED DRUG [Concomitant]
     Indication: CONTRACEPTION
     Route: 048

REACTIONS (1)
  - PULMONARY HYPERTENSION [None]
